FAERS Safety Report 9196846 (Version 2)
Quarter: 2013Q2

REPORT INFORMATION
  Report Type: Spontaneous
  Country: JP (occurrence: JP)
  Receive Date: 20130328
  Receipt Date: 20130409
  Transmission Date: 20140414
  Serious: Yes (Other)
  Sender: FDA-Public Use
  Company Number: PHHY2013JP030339

PATIENT
  Sex: Male

DRUGS (2)
  1. CARBAMAZEPINE [Suspect]
     Indication: HERPES ZOSTER OTICUS
     Route: 048
  2. VALACICLOVIR HYDROCHLORIDE [Concomitant]
     Indication: HERPES ZOSTER OTICUS
     Route: 048

REACTIONS (5)
  - Auditory meatus external erosion [Recovering/Resolving]
  - Herpes zoster [Recovering/Resolving]
  - Cerebellar ataxia [Recovering/Resolving]
  - Asterixis [Recovering/Resolving]
  - Rash [Recovering/Resolving]
